FAERS Safety Report 6614088-0 (Version None)
Quarter: 2010Q1

REPORT INFORMATION
  Report Type: 
  Country: None (occurrence: None)
  Receive Date: 20100304
  Receipt Date: 20100222
  Transmission Date: 20100710
  Serious: Yes (Hospitalization)
  Sender: FDA-Public Use
  Company Number: PHHY2010US10365

PATIENT
  Sex: Male

DRUGS (1)
  1. EXJADE [Suspect]
     Indication: APLASIA PURE RED CELL
     Dosage: 1750 MG PER DAY
     Route: 048

REACTIONS (1)
  - GRAND MAL CONVULSION [None]
